FAERS Safety Report 11627429 (Version 1)
Quarter: 2015Q4

REPORT INFORMATION
  Report Type: Spontaneous
  Country: US (occurrence: US)
  Receive Date: 20151013
  Receipt Date: 20151013
  Transmission Date: 20160304
  Serious: No
  Sender: FDA-Public Use
  Company Number: US-AMGEN-USASP2015103959

PATIENT
  Age: 35 Year
  Sex: Female

DRUGS (1)
  1. ENBREL [Suspect]
     Active Substance: ETANERCEPT
     Indication: PSORIATIC ARTHROPATHY
     Dosage: 50 MG, ONCE WEEKLY
     Route: 065
     Dates: start: 2015

REACTIONS (7)
  - Injection site swelling [Recovered/Resolved]
  - Injection site warmth [Unknown]
  - Injection site erythema [Recovered/Resolved]
  - Injection site reaction [Not Recovered/Not Resolved]
  - Injection site bruising [Unknown]
  - Injection site pruritus [Recovered/Resolved]
  - Inappropriate schedule of drug administration [Unknown]

NARRATIVE: CASE EVENT DATE: 20150928
